FAERS Safety Report 10550974 (Version 1)
Quarter: 2014Q4

REPORT INFORMATION
  Report Type: Spontaneous
  Country: DE (occurrence: None)
  Receive Date: 20141027
  Receipt Date: 20141027
  Transmission Date: 20150529
  Serious: No
  Sender: FDA-Public Use
  Company Number: DE-LHC-2014093

PATIENT
  Sex: Male

DRUGS (1)
  1. CONOXIA [Suspect]
     Active Substance: OXYGEN
     Indication: CHRONIC OBSTRUCTIVE PULMONARY DISEASE
     Route: 055
     Dates: start: 20140916

REACTIONS (2)
  - Dyspnoea [None]
  - Nausea [None]

NARRATIVE: CASE EVENT DATE: 20140916
